FAERS Safety Report 11146655 (Version 1)
Quarter: 2015Q2

REPORT INFORMATION
  Report Type: Spontaneous
  Country: GB (occurrence: GB)
  Receive Date: 20150528
  Receipt Date: 20150528
  Transmission Date: 20150821
  Serious: Yes (Other)
  Sender: FDA-Public Use
  Company Number: GB-ASTRAZENECA-2015SE50309

PATIENT
  Age: 72 Year
  Sex: Female
  Weight: 67.4 kg

DRUGS (9)
  1. PRAVASTATIN [Concomitant]
     Active Substance: PRAVASTATIN\PRAVASTATIN SODIUM
  2. LANSOPRAZOLE. [Concomitant]
     Active Substance: LANSOPRAZOLE
  3. ASPIRIN. [Concomitant]
     Active Substance: ASPIRIN
  4. VALSARTAN. [Concomitant]
     Active Substance: VALSARTAN
  5. SALBUTAMOL [Concomitant]
     Active Substance: ALBUTEROL
  6. TICAGRELOR [Suspect]
     Active Substance: TICAGRELOR
     Indication: ARTERIOGRAM CORONARY
     Route: 048
     Dates: start: 20141124, end: 20150309
  7. BISOPROLOL [Concomitant]
     Active Substance: BISOPROLOL
  8. SYMBICORT [Concomitant]
     Active Substance: BUDESONIDE\FORMOTEROL FUMARATE DIHYDRATE
  9. AMLODIPINE [Concomitant]
     Active Substance: AMLODIPINE BESYLATE

REACTIONS (3)
  - Anaemia [Recovered/Resolved]
  - Abdominal pain [Recovered/Resolved]
  - Diarrhoea haemorrhagic [Recovered/Resolved]

NARRATIVE: CASE EVENT DATE: 20150213
